FAERS Safety Report 7093011-1 (Version None)
Quarter: 2010Q4

REPORT INFORMATION
  Report Type: 
  Country: None (occurrence: None)
  Receive Date: 20101110
  Receipt Date: 20101028
  Transmission Date: 20110411
  Serious: Yes (Other)
  Sender: FDA-Public Use
  Company Number: GB-ELI_LILLY_AND_COMPANY-GB201010006972

PATIENT
  Sex: Male

DRUGS (2)
  1. HUMULIN N [Suspect]
     Dates: start: 20101001
  2. CORTICOSTEROIDS [Concomitant]

REACTIONS (1)
  - INJECTION SITE RASH [None]
